FAERS Safety Report 4886784-7 (Version None)
Quarter: 2006Q1

REPORT INFORMATION
  Report Type: 
  Country: None (occurrence: None)
  Receive Date: 20060119
  Receipt Date: 20060106
  Transmission Date: 20060701
  Serious: Yes (Hospitalization)
  Sender: FDA-Public Use
  Company Number: 2006007952

PATIENT
  Age: 14 Year
  Sex: Female

DRUGS (3)
  1. ZIPRASIDONE HCL [Suspect]
     Indication: ILL-DEFINED DISORDER
     Dosage: UNK (60 MG, UNKNOWN),
  2. ACETAMINOPHEN [Suspect]
     Indication: ILL-DEFINED DISORDER
     Dosage: 15 GRAM (UNKNOWN),
  3. CITALOPRAM (CITALOPRAM) [Suspect]
     Indication: ILL-DEFINED DISORDER
     Dosage: UNK (20 MG, UNKNOWN),

REACTIONS (2)
  - OVERDOSE [None]
  - SUICIDE ATTEMPT [None]
